FAERS Safety Report 19544959 (Version 2)
Quarter: 2021Q3

REPORT INFORMATION
  Report Type: Spontaneous
  Country: US (occurrence: US)
  Receive Date: 20210714
  Receipt Date: 20210730
  Transmission Date: 20211014
  Serious: Yes (Hospitalization, Other)
  Sender: FDA-Public Use
  Company Number: US-PFIZER INC-2021817779

PATIENT
  Age: 6 Year
  Sex: Male

DRUGS (2)
  1. GENOTROPIN [Suspect]
     Active Substance: SOMATROPIN
     Indication: BLOOD GROWTH HORMONE DECREASED
     Dosage: UNK, 1X/DAY (INJECTED NIGHTLY)
     Dates: start: 200309
  2. ADRENALINE [EPINEPHRINE] [Concomitant]
     Active Substance: EPINEPHRINE
     Indication: HYPOPITUITARISM
     Dosage: UNK

REACTIONS (5)
  - Trismus [Unknown]
  - Febrile convulsion [Recovered/Resolved]
  - Vomiting [Unknown]
  - Blood glucose decreased [Unknown]
  - Syncope [Unknown]
